FAERS Safety Report 15451117 (Version 2)
Quarter: 2018Q4

REPORT INFORMATION
  Report Type: Report from Study
  Country: US (occurrence: US)
  Receive Date: 20181001
  Receipt Date: 20181116
  Transmission Date: 20190204
  Serious: Yes (Hospitalization)
  Sender: FDA-Public Use
  Company Number: PHHO2018GB010532

PATIENT
  Sex: Female
  Weight: 89.2 kg

DRUGS (2)
  1. GSK1120212 [Suspect]
     Active Substance: TRAMETINIB
     Dosage: 2 MG, QD,FILM COATED TABLET
     Route: 048
     Dates: start: 20180811, end: 20180829
  2. GSK1120212 [Suspect]
     Active Substance: TRAMETINIB
     Indication: OVARIAN EPITHELIAL CANCER
     Dosage: 2 MG, QD,FILM COATED TABLET
     Route: 048
     Dates: start: 20180321

REACTIONS (1)
  - Gastrointestinal fistula [Recovering/Resolving]

NARRATIVE: CASE EVENT DATE: 20180829
